FAERS Safety Report 6256420-6 (Version None)
Quarter: 2009Q3

REPORT INFORMATION
  Report Type: 
  Country: None (occurrence: None)
  Receive Date: 20090706
  Receipt Date: 20090629
  Transmission Date: 20100115
  Serious: Yes (Death)
  Sender: FDA-Public Use
  Company Number: US-JNJFOC-20090609532

PATIENT
  Age: 53 Year
  Sex: Male

DRUGS (19)
  1. TMC114 [Suspect]
     Indication: HIV INFECTION
     Route: 048
  2. ETRAVIRINE [Suspect]
     Indication: HIV INFECTION
     Route: 048
  3. ENFUVIRTIDE [Suspect]
     Indication: HIV INFECTION
     Route: 058
  4. RITONAVIR [Suspect]
     Indication: HIV INFECTION
     Route: 048
  5. EMTRICITABINE/TENOFOVIR DISOPROXIL [Suspect]
     Indication: HIV INFECTION
  6. RALTEGRAVIR [Suspect]
     Indication: HIV INFECTION
     Route: 048
  7. ACYCLOVIR [Concomitant]
  8. LAMOTRIGINE [Concomitant]
  9. IBUPROFEN TABLETS [Concomitant]
  10. NORTRIPTYLINE HCL [Concomitant]
  11. ATORVASTATIN CALCIUM [Concomitant]
  12. MEXILETENE [Concomitant]
  13. GEMFIBROZIL [Concomitant]
  14. LEVALBUTEROL HYDROCHLORIDE [Concomitant]
  15. ANDROGEL [Concomitant]
  16. OXYCONTIN [Concomitant]
  17. ALDARA [Concomitant]
  18. SEPTRA [Concomitant]
  19. EFUDEX [Concomitant]

REACTIONS (1)
  - DEATH [None]
